FAERS Safety Report 6705066-1 (Version None)
Quarter: 2010Q2

REPORT INFORMATION
  Report Type: 
  Country: None (occurrence: None)
  Receive Date: 20100430
  Receipt Date: 20100423
  Transmission Date: 20101027
  Serious: Yes (Hospitalization)
  Sender: FDA-Public Use
  Company Number: B0650644A

PATIENT
  Sex: Female

DRUGS (2)
  1. AMOXICILLIN AND CLAVULANATE POTASSIUM [Suspect]
     Indication: BRONCHITIS
     Dosage: 1G PER DAY
     Route: 048
     Dates: start: 20100402, end: 20100402
  2. COMBISARTAN [Concomitant]
     Indication: HYPERTENSION
     Route: 048

REACTIONS (7)
  - DYSPNOEA [None]
  - ERYTHEMA [None]
  - FEELING ABNORMAL [None]
  - FEELING HOT [None]
  - LIP OEDEMA [None]
  - PRESYNCOPE [None]
  - PRURITUS [None]
